FAERS Safety Report 5106046-2 (Version None)
Quarter: 2006Q3

REPORT INFORMATION
  Report Type: 
  Country: None (occurrence: None)
  Receive Date: 20060915
  Receipt Date: 20060907
  Transmission Date: 20061208
  Serious: Yes (Hospitalization)
  Sender: FDA-Public Use
  Company Number: DE-ABBOTT-06P-062-0343417-00

PATIENT
  Sex: Female
  Weight: 66 kg

DRUGS (3)
  1. HUMIRA [Suspect]
     Indication: RHEUMATOID ARTHRITIS
     Route: 058
     Dates: start: 20031205, end: 20060401
  2. HUMIRA [Suspect]
     Route: 058
     Dates: start: 20060711
  3. HUMIRA [Concomitant]
     Indication: RHEUMATOID ARTHRITIS
     Route: 058
     Dates: start: 20031012

REACTIONS (1)
  - KNEE ARTHROPLASTY [None]
